FAERS Safety Report 17802613 (Version 3)
Quarter: 2021Q2

REPORT INFORMATION
  Report Type: Spontaneous
  Country: AU (occurrence: AU)
  Receive Date: 20200519
  Receipt Date: 20210513
  Transmission Date: 20210716
  Serious: Yes (Other)
  Sender: FDA-Public Use
  Company Number: NVSC2020AU132891

PATIENT
  Sex: Male

DRUGS (4)
  1. POSACONAZOLE [Concomitant]
     Active Substance: POSACONAZOLE
     Dosage: 100 MG, QD
     Route: 065
  2. CYCLOSPORINE. [Suspect]
     Active Substance: CYCLOSPORINE
     Indication: WEANING FAILURE
  3. POSACONAZOLE [Concomitant]
     Active Substance: POSACONAZOLE
     Indication: PRODUCT USED FOR UNKNOWN INDICATION
     Dosage: 300 MG, QD
     Route: 065
     Dates: start: 202003
  4. CYCLOSPORINE. [Suspect]
     Active Substance: CYCLOSPORINE
     Indication: GRAFT VERSUS HOST DISEASE
     Dosage: 10 MG
     Route: 058

REACTIONS (8)
  - Graft versus host disease in skin [Not Recovered/Not Resolved]
  - BK virus infection [Unknown]
  - Dysuria [Unknown]
  - Rash maculo-papular [Unknown]
  - Immunosuppression [Unknown]
  - Dry eye [Unknown]
  - Cystitis [Unknown]
  - Graft versus host disease in eye [Not Recovered/Not Resolved]
